FAERS Safety Report 25325114 (Version 1)
Quarter: 2025Q2

REPORT INFORMATION
  Report Type: Report from Study
  Country: AT (occurrence: AT)
  Receive Date: 20250516
  Receipt Date: 20250516
  Transmission Date: 20250716
  Serious: Yes (Hospitalization)
  Sender: ABBVIE
  Company Number: AT-ABBVIE-6281277

PATIENT
  Age: 80 Year
  Sex: Female

DRUGS (2)
  1. CARBIDOPA\LEVODOPA [Suspect]
     Active Substance: CARBIDOPA\LEVODOPA
     Indication: Parkinson^s disease
     Route: 050
     Dates: start: 20221012
  2. CARBIDOPA\LEVODOPA [Suspect]
     Active Substance: CARBIDOPA\LEVODOPA
     Route: 050

REACTIONS (2)
  - Urinary tract infection [Not Recovered/Not Resolved]
  - General physical health deterioration [Not Recovered/Not Resolved]

NARRATIVE: CASE EVENT DATE: 20250512
